FAERS Safety Report 20443808 (Version 1)
Quarter: 2022Q1

REPORT INFORMATION
  Report Type: Spontaneous
  Country: US (occurrence: None)
  Receive Date: 20220207
  Receipt Date: 20220207
  Transmission Date: 20220423
  Serious: Yes (Other)
  Sender: FDA-Public Use
  Company Number: None

PATIENT
  Age: 15 Year
  Sex: Female
  Weight: 58.6 kg

DRUGS (1)
  1. SOTROVIMAB [Suspect]
     Active Substance: SOTROVIMAB
     Indication: COVID-19
     Dosage: OTHER FREQUENCY : ONCE;?
     Route: 042
     Dates: start: 20220203, end: 20220203

REACTIONS (4)
  - Dystonia [None]
  - Anaphylactoid reaction [None]
  - Infusion related reaction [None]
  - Anaphylactic reaction [None]

NARRATIVE: CASE EVENT DATE: 20220203
